FAERS Safety Report 8270897-6 (Version None)
Quarter: 2012Q2

REPORT INFORMATION
  Report Type: 
  Country: None (occurrence: None)
  Receive Date: 20120410
  Receipt Date: 20120410
  Transmission Date: 20120825
  Serious: Yes (Life-Threatening, Other)
  Sender: FDA-Public Use
  Company Number: None

PATIENT
  Age: 68 Year
  Sex: Male
  Weight: 97.522 kg

DRUGS (1)
  1. DEFINITY [Suspect]

REACTIONS (3)
  - PAIN IN EXTREMITY [None]
  - PAIN [None]
  - BACK PAIN [None]
